FAERS Safety Report 6048886-1 (Version None)
Quarter: 2009Q1

REPORT INFORMATION
  Report Type: 
  Country: None (occurrence: None)
  Receive Date: 20090123
  Receipt Date: 20090120
  Transmission Date: 20090719
  Serious: Yes (Life-Threatening)
  Sender: FDA-Public Use
  Company Number: FR-ABBOTT-09P-056-0498013-00

PATIENT
  Sex: Female

DRUGS (4)
  1. HUMIRA [Suspect]
     Indication: PSORIASIS
     Route: 058
     Dates: start: 20060530, end: 20071016
  2. METHOTREXATE [Suspect]
     Indication: PSORIASIS
     Route: 048
     Dates: start: 20071016, end: 20071121
  3. METHOTREXATE [Suspect]
     Dates: start: 20071121, end: 20071221
  4. ETANERCEPT [Concomitant]
     Indication: PSORIASIS
     Route: 058
     Dates: start: 20071127

REACTIONS (2)
  - HEPATIC ENZYME INCREASED [None]
  - MALIGNANT NEOPLASM OF AMPULLA OF VATER [None]
